FAERS Safety Report 7945191-0 (Version None)
Quarter: 2011Q4

REPORT INFORMATION
  Report Type: 
  Country: None (occurrence: None)
  Receive Date: 20111129
  Receipt Date: 20111118
  Transmission Date: 20120403
  Serious: Yes (Death)
  Sender: FDA-Public Use
  Company Number: US-CELGENEUS-163-21880-11102711

PATIENT
  Sex: Female

DRUGS (11)
  1. VITAMIN B COMPLEX CAP [Concomitant]
     Route: 048
  2. FENOFIBRATE [Concomitant]
     Dosage: 160 MILLIGRAM
     Route: 048
  3. FERROUS SULFATE TAB [Concomitant]
     Dosage: 300 MILLIGRAM
     Route: 048
  4. REVLIMID [Suspect]
     Indication: MYELODYSPLASTIC SYNDROME
     Dosage: 10 MILLIGRAM
     Route: 048
     Dates: start: 20110801, end: 20111001
  5. ALLEGRA [Concomitant]
     Dosage: 180 MILLIGRAM
     Route: 048
  6. MULTI-VITAMINS [Concomitant]
     Route: 048
  7. OMEGA-3 FATTY ACIDS [Concomitant]
     Route: 048
  8. ASCORBIC ACID [Concomitant]
     Dosage: 500 MILLIGRAM
     Route: 048
  9. CALCIUM [Concomitant]
     Dosage: 600 MILLIGRAM
     Route: 048
  10. DIOVAN [Concomitant]
     Dosage: 160 MILLIGRAM
     Route: 048
  11. CLONIDINE [Concomitant]
     Dosage: .1 MILLIGRAM
     Route: 048

REACTIONS (1)
  - CARDIO-RESPIRATORY ARREST [None]
